FAERS Safety Report 5537468-3 (Version None)
Quarter: 2007Q4

REPORT INFORMATION
  Report Type: 
  Country: None (occurrence: None)
  Receive Date: 20071207
  Receipt Date: 20071129
  Transmission Date: 20080405
  Serious: Yes (Death)
  Sender: FDA-Public Use
  Company Number: TR-ELI_LILLY_AND_COMPANY-TR200712000105

PATIENT
  Age: 45 Year
  Sex: Female

DRUGS (1)
  1. HUMULIN R [Suspect]
     Dosage: UNK UNK, UNKNOWN
     Route: 058
     Dates: start: 20070901

REACTIONS (1)
  - DEATH [None]
